FAERS Safety Report 26168232 (Version 1)
Quarter: 2025Q4

REPORT INFORMATION
  Report Type: Report from Study
  Country: EU (occurrence: EU)
  Receive Date: 20251217
  Receipt Date: 20251217
  Transmission Date: 20260118
  Serious: Yes (Other)
  Sender: AMGEN
  Company Number: EU-AMGEN-FRASP2025245930

PATIENT
  Age: 30 Year
  Sex: Male

DRUGS (2)
  1. TEPROTUMUMAB [Suspect]
     Active Substance: TEPROTUMUMAB
     Indication: Endocrine ophthalmopathy
     Dosage: 10 MILLIGRAM/KILOGRAM (FIRST INJECTION)
     Route: 065
  2. TEPROTUMUMAB [Suspect]
     Active Substance: TEPROTUMUMAB
     Dosage: 10 MILLIGRAM/KILOGRAM (SECOND INJECTION)
     Route: 065

REACTIONS (2)
  - Thrombocytopenia [Unknown]
  - Ototoxicity [Unknown]
